APPROVED DRUG PRODUCT: AZACITIDINE
Active Ingredient: AZACITIDINE
Strength: 100MG/VIAL
Dosage Form/Route: POWDER;INTRAVENOUS, SUBCUTANEOUS
Application: A217453 | Product #001 | TE Code: AP
Applicant: RELIANCE LIFE SCIENCES PVT LTD
Approved: May 20, 2025 | RLD: No | RS: No | Type: RX